FAERS Safety Report 10534768 (Version 1)
Quarter: 2014Q4

REPORT INFORMATION
  Report Type: Spontaneous
  Country: DE (occurrence: DE)
  Receive Date: 20141022
  Receipt Date: 20141022
  Transmission Date: 20150529
  Serious: Yes (Hospitalization, Other)
  Sender: FDA-Public Use
  Company Number: DE-009507513-1410DEU008978

PATIENT
  Age: 35 Year
  Sex: Male

DRUGS (1)
  1. PROPECIA [Suspect]
     Active Substance: FINASTERIDE
     Indication: ALOPECIA
     Dosage: UNK
     Route: 048

REACTIONS (3)
  - Pituitary tumour removal [Recovered/Resolved]
  - Pituitary tumour benign [Recovered/Resolved]
  - Blood testosterone decreased [Unknown]
